FAERS Safety Report 14601117 (Version 2)
Quarter: 2018Q1

REPORT INFORMATION
  Report Type: Spontaneous
  Country: US (occurrence: US)
  Receive Date: 20180305
  Receipt Date: 20180307
  Transmission Date: 20180509
  Serious: No
  Sender: FDA-Public Use
  Company Number: US-009507513-1802USA008808

PATIENT
  Age: 34 Year
  Sex: Female
  Weight: 56.68 kg

DRUGS (3)
  1. NEXPLANON [Suspect]
     Active Substance: ETONOGESTREL
     Indication: CONTRACEPTION
     Dosage: 1 DF, EVERY 3 YEARS, LEFT ARM,
     Route: 059
     Dates: end: 20180214
  2. TYLENOL [Concomitant]
     Active Substance: ACETAMINOPHEN
  3. NEXPLANON [Suspect]
     Active Substance: ETONOGESTREL
     Indication: MUSCLE SPASMS
     Dosage: 1 DF, UNK
     Route: 059

REACTIONS (7)
  - Implant site haematoma [Unknown]
  - Implant site fibrosis [Recovered/Resolved]
  - Device deployment issue [Recovered/Resolved]
  - Product use in unapproved indication [Unknown]
  - Complication of device removal [Recovered/Resolved]
  - Implant site haemorrhage [Unknown]
  - Limb discomfort [Unknown]

NARRATIVE: CASE EVENT DATE: 20180214
